FAERS Safety Report 5955500-X (Version None)
Quarter: 2008Q4

REPORT INFORMATION
  Report Type: 
  Country: None (occurrence: None)
  Receive Date: 20081113
  Receipt Date: 20081113
  Transmission Date: 20090506
  Serious: No
  Sender: FDA-Public Use
  Company Number: None

PATIENT
  Age: 79 Year
  Sex: Male
  Weight: 182 kg

DRUGS (1)
  1. CLINDAMYCIN HCL [Suspect]
     Dosage: 300 MG QID PO
     Route: 048
     Dates: start: 20081003, end: 20081010

REACTIONS (2)
  - RASH [None]
  - RASH GENERALISED [None]
